FAERS Safety Report 9758794 (Version 1)
Quarter: 2013Q4

REPORT INFORMATION
  Report Type: Spontaneous
  Country: US (occurrence: None)
  Receive Date: 20131213
  Receipt Date: 20131213
  Transmission Date: 20140711
  Serious: No
  Sender: FDA-Public Use
  Company Number: None

PATIENT
  Sex: Female

DRUGS (1)
  1. FORTEO 600 MCG LILY [Suspect]
     Indication: OSTEOPOROSIS
     Dates: start: 20120808, end: 20131210

REACTIONS (1)
  - Blood magnesium decreased [None]
